FAERS Safety Report 6820734-9 (Version None)
Quarter: 2010Q3

REPORT INFORMATION
  Report Type: 
  Country: None (occurrence: None)
  Receive Date: 20100707
  Receipt Date: 20070527
  Transmission Date: 20110219
  Serious: Yes (Other)
  Sender: FDA-Public Use
  Company Number: US-PFIZER INC-2007044728

PATIENT
  Sex: Female

DRUGS (4)
  1. ZOLOFT [Suspect]
     Indication: SLEEP DISORDER
  2. ZOLOFT [Suspect]
     Indication: EATING DISORDER
  3. ZOLOFT [Suspect]
     Indication: GAIT DISTURBANCE
  4. ALL OTHER THERAPEUTIC PRODUCTS [Concomitant]

REACTIONS (1)
  - BLOOD GLUCOSE DECREASED [None]
